FAERS Safety Report 24836664 (Version 1)
Quarter: 2025Q1

REPORT INFORMATION
  Report Type: Spontaneous
  Country: US (occurrence: US)
  Receive Date: 20250113
  Receipt Date: 20250113
  Transmission Date: 20250409
  Serious: Yes (Death)
  Sender: BAYER HEALTHCARE LLC
  Company Number: US-BAYER-2025A003180

PATIENT
  Age: 65 Year
  Sex: Female

DRUGS (3)
  1. ASPIRIN [Suspect]
     Active Substance: ASPIRIN
  2. ACETAMINOPHEN [Suspect]
     Active Substance: ACETAMINOPHEN
  3. MECLIZINE [Suspect]
     Active Substance: MECLIZINE HYDROCHLORIDE

REACTIONS (2)
  - Toxicity to various agents [Fatal]
  - Intentional overdose [Fatal]
